FAERS Safety Report 24853179 (Version 1)
Quarter: 2025Q1

REPORT INFORMATION
  Report Type: Spontaneous
  Country: CA (occurrence: CA)
  Receive Date: 20250117
  Receipt Date: 20250117
  Transmission Date: 20250408
  Serious: Yes (Hospitalization)
  Sender: CSL BEHRING
  Company Number: CA-BEH-2025191319

PATIENT
  Age: 63 Year
  Sex: Female

DRUGS (3)
  1. HUMAN IMMUNOGLOBULIN G [Suspect]
     Active Substance: HUMAN IMMUNOGLOBULIN G
     Indication: Primary immunodeficiency syndrome
     Dosage: 10 G, QW(1 EVERY 1 WEEKS)
     Route: 058
  2. HUMAN IMMUNOGLOBULIN G [Suspect]
     Active Substance: HUMAN IMMUNOGLOBULIN G
     Route: 065
  3. HUMAN IMMUNOGLOBULIN G [Concomitant]
     Active Substance: HUMAN IMMUNOGLOBULIN G
     Indication: Product used for unknown indication

REACTIONS (13)
  - Anaemia [Recovering/Resolving]
  - Asthenia [Recovering/Resolving]
  - Blood disorder [Recovering/Resolving]
  - Chest discomfort [Recovering/Resolving]
  - Chromaturia [Recovering/Resolving]
  - Dyspnoea [Recovering/Resolving]
  - Fatigue [Recovering/Resolving]
  - Illness [Recovering/Resolving]
  - Jaundice [Recovering/Resolving]
  - Middle insomnia [Recovering/Resolving]
  - Night sweats [Recovering/Resolving]
  - Rash [Recovering/Resolving]
  - Off label use [Unknown]
